FAERS Safety Report 6178519-5 (Version None)
Quarter: 2009Q2

REPORT INFORMATION
  Report Type: 
  Country: None (occurrence: None)
  Receive Date: 20090430
  Receipt Date: 20090420
  Transmission Date: 20091009
  Serious: Yes (Life-Threatening)
  Sender: FDA-Public Use
  Company Number: 2009AP001596

PATIENT
  Age: 1 Year
  Sex: Male

DRUGS (6)
  1. CLARITHROMYCIN [Suspect]
     Indication: PROPHYLAXIS
     Dosage: 62.5 MG; BID NGT
     Route: 021
     Dates: start: 20081204, end: 20090107
  2. CLARITHROMYCIN [Suspect]
     Indication: RESPIRATORY TRACT INFECTION
     Dosage: 62.5 MG; BID NGT
     Route: 021
     Dates: start: 20081204, end: 20090107
  3. CEFOTAXIME SODIUM [Concomitant]
  4. DOBUTAMINE (DOBUTAMINE) [Concomitant]
  5. FLOXACILLIN SODIUM [Concomitant]
  6. METRONIDAZOLE [Concomitant]

REACTIONS (2)
  - ACUTE HEPATIC FAILURE [None]
  - SHOCK [None]
